FAERS Safety Report 13108488 (Version 1)
Quarter: 2017Q1

REPORT INFORMATION
  Report Type: Spontaneous
  Country: US (occurrence: US)
  Receive Date: 20170112
  Receipt Date: 20170112
  Transmission Date: 20170428
  Serious: Yes (Other)
  Sender: FDA-Public Use
  Company Number: US-CHURCH + DWIGHT CO., INC.-1061947

PATIENT

DRUGS (1)
  1. ORAJEL INSTANT PAIN RELIEF MAXIMUM [Suspect]
     Active Substance: BENZALKONIUM CHLORIDE\BENZOCAINE
     Dates: start: 20161220

REACTIONS (1)
  - Methaemoglobinaemia [Unknown]

NARRATIVE: CASE EVENT DATE: 20161220
